FAERS Safety Report 17904616 (Version 1)
Quarter: 2020Q2

REPORT INFORMATION
  Report Type: Spontaneous
  Country: CA (occurrence: CA)
  Receive Date: 20200617
  Receipt Date: 20200617
  Transmission Date: 20200714
  Serious: Yes (Life-Threatening, Other)
  Sender: FDA-Public Use
  Company Number: CA-RECORDATI RARE DISEASES-2086008

PATIENT
  Age: 42 Year
  Sex: Female
  Weight: 58 kg

DRUGS (1)
  1. SIGNIFOR [Suspect]
     Active Substance: PASIREOTIDE DIASPARTATE
     Indication: HYPERINSULINAEMIC HYPOGLYCAEMIA
     Route: 058
     Dates: start: 20200512, end: 20200529

REACTIONS (7)
  - Lethargy [Recovering/Resolving]
  - Product use in unapproved indication [Unknown]
  - Headache [Recovering/Resolving]
  - Rash pruritic [Recovering/Resolving]
  - Presyncope [Recovering/Resolving]
  - Listless [Recovering/Resolving]
  - Hypotension [Recovering/Resolving]

NARRATIVE: CASE EVENT DATE: 20200512
